FAERS Safety Report 7952153-6 (Version None)
Quarter: 2011Q4

REPORT INFORMATION
  Report Type: 
  Country: None (occurrence: None)
  Receive Date: 20111201
  Receipt Date: 20111120
  Transmission Date: 20120403
  Serious: Yes (Other)
  Sender: FDA-Public Use
  Company Number: PHHY2011PL102222

PATIENT
  Age: 30 Year
  Sex: Male

DRUGS (5)
  1. TACROLIMUS [Concomitant]
     Dosage: UNK UKN, UNK
     Route: 061
  2. PREDNISONE TAB [Concomitant]
     Dosage: 5 MG/ DAY
  3. TACROLIMUS [Concomitant]
     Dosage: UNK UKN, UNK
  4. MYCOPHENOLATE MOFETIL [Concomitant]
     Dosage: 2 G/ DAY
  5. SIMULECT [Suspect]
     Indication: TRANSPLANT
     Dosage: UNK UKN, UNK

REACTIONS (8)
  - FATIGUE [None]
  - ABDOMINAL PAIN [None]
  - CYTOMEGALOVIRUS INFECTION [None]
  - TRANSPLANT REJECTION [None]
  - TYPE 2 DIABETES MELLITUS [None]
  - RASH PAPULAR [None]
  - GENERAL PHYSICAL HEALTH DETERIORATION [None]
  - MALAISE [None]
